FAERS Safety Report 7671167-7 (Version None)
Quarter: 2011Q3

REPORT INFORMATION
  Report Type: 
  Country: None (occurrence: None)
  Receive Date: 20110803
  Receipt Date: 20110719
  Transmission Date: 20111222
  Serious: Yes (Hospitalization)
  Sender: FDA-Public Use
  Company Number: DSM-2011-00724

PATIENT
  Age: 77 Year
  Sex: Female

DRUGS (5)
  1. ACUPAN (NEFOPAM HYDROCHLORIDE) (NEFOPAM HYDROCHLORIDE) [Concomitant]
  2. HYPERIUM (RILMENIDINE PHOSPHATE) (RILMENIDINE PHOSPHATE) [Concomitant]
  3. OLMESARTAN MEDOXOMIL AND HYDROCHLOROTHIZIDE [Suspect]
     Indication: HYPERTENSION
     Dosage: ORAL
     Route: 048
     Dates: start: 20110501, end: 20110604
  4. MYOLASTAN (TETRAZEPAM) (TETRAZEPAM) [Concomitant]
  5. TOPALGIC (TRAMADOL HYDROCHLORIDE) (TRAMADOL HYDROCHLORIDE) [Concomitant]

REACTIONS (5)
  - LOSS OF CONSCIOUSNESS [None]
  - HYPONATRAEMIA [None]
  - MALAISE [None]
  - DISEASE PRODROMAL STAGE [None]
  - ANXIETY [None]
